FAERS Safety Report 15510046 (Version 1)
Quarter: 2018Q4

REPORT INFORMATION
  Report Type: Spontaneous
  Country: US (occurrence: US)
  Receive Date: 20181010
  Receipt Date: 20181010
  Transmission Date: 20190205
  Serious: No
  Sender: FDA-Public Use
  Company Number: None

PATIENT
  Age: 61 Year
  Sex: Female

DRUGS (1)
  1. ESTRADIOL. [Suspect]
     Active Substance: ESTRADIOL
     Indication: POSTMENOPAUSE
     Route: 062
     Dates: start: 201612, end: 201701

REACTIONS (5)
  - Application site rash [None]
  - Application site pruritus [None]
  - Application site pain [None]
  - Application site erythema [None]
  - Application site irritation [None]

NARRATIVE: CASE EVENT DATE: 20161220
